FAERS Safety Report 15205517 (Version 5)
Quarter: 2020Q3

REPORT INFORMATION
  Report Type: Report from Study
  Country: CA (occurrence: CA)
  Receive Date: 20180726
  Receipt Date: 20190226
  Transmission Date: 20201104
  Serious: Yes (Hospitalization)
  Sender: FDA-Public Use
  Company Number: PHHO2018CA008465

PATIENT
  Age: 53 Year
  Sex: Male

DRUGS (3)
  1. CARBOPLATIN. [Suspect]
     Active Substance: CARBOPLATIN
     Indication: NON-SMALL CELL LUNG CANCER METASTATIC
     Dosage: 795 MG, Q3W
     Route: 042
     Dates: start: 20180427
  2. PACLITAXEL. [Suspect]
     Active Substance: PACLITAXEL
     Indication: NON-SMALL CELL LUNG CANCER METASTATIC
     Dosage: 386 MG, Q3W
     Route: 042
     Dates: start: 20180427
  3. PDR001 [Suspect]
     Active Substance: SPARTALIZUMAB
     Indication: NON-SMALL CELL LUNG CANCER METASTATIC
     Dosage: 300 MG, Q3W
     Route: 042
     Dates: start: 20180427

REACTIONS (2)
  - Febrile neutropenia [Recovered/Resolved]
  - Febrile neutropenia [Recovered/Resolved]

NARRATIVE: CASE EVENT DATE: 20180715
